FAERS Safety Report 5215265-6 (Version None)
Quarter: 2007Q1

REPORT INFORMATION
  Report Type: 
  Country: None (occurrence: None)
  Receive Date: 20061122
  Receipt Date: 20060619
  Transmission Date: 20070707
  Serious: Yes (Other)
  Sender: FDA-Public Use
  Company Number: HQWYE339922JUN06

PATIENT
  Age: 71 Year
  Sex: Female
  Weight: 70.37 kg

DRUGS (2)
  1. PREMARIN [Suspect]
     Indication: MENOPAUSE
     Dosage: 0.625 MG 1X PER 1 DAY, VAGINAL
     Route: 067
     Dates: start: 20060106, end: 20060501
  2. HYDROCHLOROTHIAZIDE [Concomitant]

REACTIONS (1)
  - LYMPHADENOPATHY [None]
